FAERS Safety Report 17431801 (Version 1)
Quarter: 2020Q1

REPORT INFORMATION
  Report Type: Spontaneous
  Country: BR (occurrence: BR)
  Receive Date: 20200218
  Receipt Date: 20200218
  Transmission Date: 20200409
  Serious: Yes (Hospitalization, Other)
  Sender: FDA-Public Use
  Company Number: BR-JNJFOC-20200221625

PATIENT
  Age: 51 Year
  Sex: Male

DRUGS (2)
  1. RIVAROXABAN [Suspect]
     Active Substance: RIVAROXABAN
     Indication: PRODUCT USED FOR UNKNOWN INDICATION
     Dosage: 20 MG, QD
     Route: 048
  2. CINACALCET. [Concomitant]
     Active Substance: CINACALCET
     Dosage: 30 MG, QD

REACTIONS (5)
  - Haematoma [Recovered/Resolved]
  - Tracheal obstruction extrinsic [Unknown]
  - Tracheal disorder [Unknown]
  - Hypocalcaemia [Unknown]
  - Hypocoagulable state [Unknown]
